FAERS Safety Report 8923053 (Version 1)
Quarter: 2012Q4

REPORT INFORMATION
  Report Type: Spontaneous
  Country: US (occurrence: None)
  Receive Date: 20121115
  Receipt Date: 20121115
  Transmission Date: 20130627
  Serious: Yes (Death)
  Sender: FDA-Public Use
  Company Number: None

PATIENT
  Age: 63 Year
  Sex: Male

DRUGS (1)
  1. OMNIPAQUE [Suspect]
     Indication: CT SCAN
     Dates: start: 20120626, end: 20120606

REACTIONS (7)
  - Vomiting [None]
  - Fall [None]
  - Contrast media reaction [None]
  - Tachycardia [None]
  - Cardiac arrest [None]
  - Ventricular tachycardia [None]
  - Pulseless electrical activity [None]
